FAERS Safety Report 15800243 (Version 2)
Quarter: 2019Q1

REPORT INFORMATION
  Report Type: Report from Study
  Country: US (occurrence: US)
  Receive Date: 20190108
  Receipt Date: 20190114
  Transmission Date: 20190417
  Serious: Yes (Hospitalization, Other)
  Sender: FDA-Public Use
  Company Number: US-TESAROUBC-2018-TSO2069-US

PATIENT
  Sex: Female

DRUGS (5)
  1. LISINOPRIL. [Concomitant]
     Active Substance: LISINOPRIL
     Indication: PRODUCT USED FOR UNKNOWN INDICATION
  2. CLONIDINE. [Concomitant]
     Active Substance: CLONIDINE
     Indication: PRODUCT USED FOR UNKNOWN INDICATION
  3. ZEJULA [Suspect]
     Active Substance: NIRAPARIB
     Indication: OVARIAN CANCER
     Dosage: 300 MG, QD IN THE MORNING WITH FOOD
     Dates: start: 20180711
  4. VALACYCLOVIR [Suspect]
     Active Substance: VALACYCLOVIR HYDROCHLORIDE
     Indication: PRODUCT USED FOR UNKNOWN INDICATION
     Dosage: UNK
     Route: 065
  5. NEURONTIN [Concomitant]
     Active Substance: GABAPENTIN
     Indication: PRODUCT USED FOR UNKNOWN INDICATION
     Dosage: UNK, BID

REACTIONS (14)
  - Scab [Recovering/Resolving]
  - Herpes zoster [Recovered/Resolved]
  - Lethargy [Unknown]
  - Pulmonary oedema [Recovered/Resolved]
  - Haemoglobin decreased [Unknown]
  - Constipation [Recovering/Resolving]
  - Vomiting [Recovering/Resolving]
  - Cardiac failure congestive [Unknown]
  - Nausea [Recovering/Resolving]
  - Red blood cell count decreased [Unknown]
  - Confusional state [Unknown]
  - Dyspnoea [Unknown]
  - Dehydration [Unknown]
  - Renal function test abnormal [Unknown]

NARRATIVE: CASE EVENT DATE: 2018
